FAERS Safety Report 5244187-X (Version None)
Quarter: 2007Q1

REPORT INFORMATION
  Report Type: 
  Country: None (occurrence: None)
  Receive Date: 20070222
  Receipt Date: 20070213
  Transmission Date: 20070707
  Serious: Yes (Hospitalization)
  Sender: FDA-Public Use
  Company Number: FR-GLAXOSMITHKLINE-B0448771A

PATIENT
  Sex: Female

DRUGS (3)
  1. ARIXTRA [Suspect]
     Indication: DRUG USE FOR UNKNOWN INDICATION
     Route: 058
  2. FLURBIPROFEN [Suspect]
  3. UNKNOWN MEDICATION [Suspect]

REACTIONS (2)
  - LUPUS-LIKE SYNDROME [None]
  - OFF LABEL USE [None]
